FAERS Safety Report 9169251 (Version 1)
Quarter: 2013Q1

REPORT INFORMATION
  Report Type: Spontaneous
  Country: FR (occurrence: FR)
  Receive Date: 20130318
  Receipt Date: 20130318
  Transmission Date: 20140127
  Serious: Yes (Life-Threatening)
  Sender: FDA-Public Use
  Company Number: FR-ROCHE-1200552

PATIENT
  Age: 68 Year
  Sex: Male

DRUGS (5)
  1. MABTHERA [Suspect]
     Indication: MANTLE CELL LYMPHOMA
     Route: 042
     Dates: start: 201203
  2. MABTHERA [Suspect]
     Route: 042
     Dates: start: 20120924
  3. MABTHERA [Suspect]
     Route: 042
     Dates: start: 20121011, end: 20121011
  4. POLARAMINE [Suspect]
     Indication: PRODUCT USED FOR UNKNOWN INDICATION
     Route: 042
     Dates: start: 20121011, end: 20121011
  5. METHYLPREDNISOLONE [Suspect]
     Indication: PRODUCT USED FOR UNKNOWN INDICATION
     Route: 042
     Dates: start: 20121011, end: 20121011

REACTIONS (3)
  - Dyspnoea [Recovered/Resolved with Sequelae]
  - Acute respiratory failure [Recovered/Resolved]
  - Anaphylactic shock [Recovered/Resolved]
